FAERS Safety Report 4346871-9 (Version None)
Quarter: 2004Q1

REPORT INFORMATION
  Report Type: 
  Country: None (occurrence: None)
  Receive Date: 20040325
  Receipt Date: 20040225
  Transmission Date: 20041129
  Serious: No
  Sender: FDA-Public Use
  Company Number: USA040258318

PATIENT
  Age: 50 Year
  Sex: Female

DRUGS (5)
  1. FORTEO [Suspect]
     Dates: start: 20040101
  2. ESTRADIOL [Concomitant]
  3. OGEN [Concomitant]
  4. ZOLOFT (SERTRALINE HYDRCHLORIDE) [Concomitant]
  5. CALTRATE + D [Concomitant]

REACTIONS (10)
  - ABDOMINAL DISTENSION [None]
  - BONE PAIN [None]
  - CONSTIPATION [None]
  - DIZZINESS [None]
  - FATIGUE [None]
  - FLUID RETENTION [None]
  - HEADACHE [None]
  - MUSCULAR WEAKNESS [None]
  - NAUSEA [None]
  - VOMITING [None]
